FAERS Safety Report 5016674-0 (Version None)
Quarter: 2006Q2

REPORT INFORMATION
  Report Type: 
  Country: None (occurrence: None)
  Receive Date: 20060602
  Receipt Date: 20060523
  Transmission Date: 20061013
  Serious: Yes (Other)
  Sender: FDA-Public Use
  Company Number: FR-JNJFOC-20060600042

PATIENT
  Sex: Female
  Weight: 60 kg

DRUGS (1)
  1. EPITOMAX [Suspect]
     Route: 048

REACTIONS (1)
  - WEIGHT DECREASED [None]
